FAERS Safety Report 16897707 (Version 2)
Quarter: 2019Q4

REPORT INFORMATION
  Report Type: Spontaneous
  Country: ES (occurrence: ES)
  Receive Date: 20191009
  Receipt Date: 20191230
  Transmission Date: 20200122
  Serious: Yes (Death, Hospitalization)
  Sender: FDA-Public Use
  Company Number: ES-ROCHE-2422374

PATIENT
  Age: 66 Year
  Sex: Female
  Weight: 74 kg

DRUGS (6)
  1. ONDANSETRON [Concomitant]
     Active Substance: ONDANSETRON
     Indication: BREAST NEOPLASM
     Route: 042
     Dates: start: 20190710
  2. TRAZIMERA [Suspect]
     Active Substance: TRASTUZUMAB-QYYP
     Indication: BREAST NEOPLASM
     Route: 042
     Dates: start: 20190710, end: 20190710
  3. PACLITAXEL HOSPIRA [Suspect]
     Active Substance: PACLITAXEL
     Indication: BREAST NEOPLASM
     Dosage: (STRENGTH:6 MG/ML)
     Route: 042
     Dates: start: 20190710, end: 20190724
  4. DEXAMETASONA [DEXAMETHASONE] [Concomitant]
     Active Substance: DEXAMETHASONE
     Indication: BREAST NEOPLASM
     Route: 042
     Dates: start: 20190710
  5. PERJETA [Suspect]
     Active Substance: PERTUZUMAB
     Indication: BREAST NEOPLASM
     Route: 042
     Dates: start: 20190710, end: 20190710
  6. DEXCLORFENIRAMINA [Concomitant]
     Active Substance: DEXCHLORPHENIRAMINE
     Indication: BREAST NEOPLASM
     Route: 042
     Dates: start: 20190710

REACTIONS (3)
  - Diarrhoea [Not Recovered/Not Resolved]
  - Pyrexia [Not Recovered/Not Resolved]
  - Acute interstitial pneumonitis [Not Recovered/Not Resolved]

NARRATIVE: CASE EVENT DATE: 20190726
